FAERS Safety Report 9246678 (Version 1)
Quarter: 2013Q2

REPORT INFORMATION
  Report Type: Spontaneous
  Country: US (occurrence: US)
  Receive Date: 20130422
  Receipt Date: 20130422
  Transmission Date: 20140414
  Serious: No
  Sender: FDA-Public Use
  Company Number: US-ABBOTT-12P-163-0937095-00

PATIENT
  Sex: Female
  Weight: 43.4 kg

DRUGS (2)
  1. LUPRON DEPOT-PED 15 MG [Suspect]
     Indication: PRECOCIOUS PUBERTY
     Dosage: LAST INJECTION WAS REC^D ON 18 APR 2012.
     Route: 030
     Dates: start: 20111207, end: 20120516
  2. LUPRON DEPOT-PED 11.25 MG [Suspect]
     Indication: PRECOCIOUS PUBERTY
     Route: 030
     Dates: start: 20111024, end: 20111207

REACTIONS (6)
  - Injection site scar [Not Recovered/Not Resolved]
  - Wound drainage [Recovered/Resolved]
  - Wound secretion [Recovered/Resolved]
  - Injection site nodule [Recovered/Resolved]
  - Injection site abscess [Recovered/Resolved]
  - Injection site pain [Recovered/Resolved]
